FAERS Safety Report 6396843-8 (Version None)
Quarter: 2009Q4

REPORT INFORMATION
  Report Type: 
  Country: None (occurrence: None)
  Receive Date: 20091012
  Receipt Date: 20090629
  Transmission Date: 20100525
  Serious: No
  Sender: FDA-Public Use
  Company Number: US-ASTRAZENECA-2009UW17867

PATIENT
  Age: 20253 Day
  Sex: Female

DRUGS (6)
  1. SYMBICORT [Suspect]
     Indication: ASTHMA
     Dosage: 160/4.5, 2 PUFFS
     Route: 055
     Dates: start: 20090623, end: 20090629
  2. ALBUTEROL [Concomitant]
     Indication: ASTHMA
  3. SINGULAIR [Concomitant]
     Indication: ASTHMA
  4. CETIRIZINE HCL [Concomitant]
     Indication: ASTHMA
  5. PROVENTIL-HFA [Concomitant]
     Indication: ASTHMA
  6. PAIN MED [Concomitant]

REACTIONS (5)
  - BRONCHITIS [None]
  - DYSPHAGIA [None]
  - ORAL CANDIDIASIS [None]
  - SENSATION OF FOREIGN BODY [None]
  - SWOLLEN TONGUE [None]
